FAERS Safety Report 5761889-7 (Version None)
Quarter: 2008Q2

REPORT INFORMATION
  Report Type: 
  Country: None (occurrence: None)
  Receive Date: 20080602
  Receipt Date: 20080515
  Transmission Date: 20081010
  Serious: Yes (Hospitalization)
  Sender: FDA-Public Use
  Company Number: 8031977

PATIENT
  Age: 72 Year
  Sex: Female
  Weight: 74.5 kg

DRUGS (19)
  1. XYZAL [Suspect]
     Indication: DERMATITIS CONTACT
     Dosage: 1 DF /D PO
     Route: 048
     Dates: start: 20080415, end: 20080415
  2. DIOVAN /01319601/ [Concomitant]
  3. COREG [Concomitant]
  4. PREMARIN [Concomitant]
  5. VITAMIN K TAB [Concomitant]
  6. LEXAPRO [Concomitant]
  7. CLARITIN /00917501/ [Concomitant]
  8. MULTIVITAMIN /00831701/ [Concomitant]
  9. CALCIUM [Concomitant]
  10. FLAX SEED OIL [Concomitant]
  11. FIBER-LAX [Concomitant]
  12. POTASSIUM CHLORIDE [Concomitant]
  13. LISINOPRIL [Concomitant]
  14. VITAMIN B [Concomitant]
  15. ASCORBIC ACID [Concomitant]
  16. VITAMIN E [Concomitant]
  17. ZINC [Concomitant]
  18. A-VITAMIN [Concomitant]
  19. PREDNISONE TAB [Concomitant]

REACTIONS (3)
  - FATIGUE [None]
  - HYPOTENSION [None]
  - LOSS OF CONSCIOUSNESS [None]
